FAERS Safety Report 12319206 (Version 2)
Quarter: 2016Q4

REPORT INFORMATION
  Report Type: Report from Study
  Country: ES (occurrence: ES)
  Receive Date: 20160429
  Receipt Date: 20161207
  Transmission Date: 20170207
  Serious: Yes (Death, Other)
  Sender: FDA-Public Use
  Company Number: ES-CELGENEUS-ESP-2016044759

PATIENT

DRUGS (4)
  1. CYTARABINE. [Concomitant]
     Active Substance: CYTARABINE
     Indication: ACUTE MYELOID LEUKAEMIA
     Dosage: 75MG/M2
     Route: 058
  2. FILGRASTIM [Concomitant]
     Active Substance: FILGRASTIM
     Indication: ACUTE MYELOID LEUKAEMIA
     Dosage: 5UG/KG
     Route: 058
  3. AZACITIDINE INJECTABLE [Suspect]
     Active Substance: AZACITIDINE
     Indication: ACUTE MYELOID LEUKAEMIA
     Dosage: 75MG/M2
     Route: 058
  4. FLUDARABINE [Concomitant]
     Active Substance: FLUDARABINE PHOSPHATE
     Indication: ACUTE MYELOID LEUKAEMIA
     Dosage: 40MG/M2
     Route: 065

REACTIONS (30)
  - Cardiac disorder [Unknown]
  - Cellulitis [Unknown]
  - Disease progression [Fatal]
  - Neutropenia [Unknown]
  - Respiratory disorder [Unknown]
  - Hypotension [Unknown]
  - Monarthritis [Unknown]
  - Thrombocytopenia [Unknown]
  - Infection [Fatal]
  - Septic shock [Unknown]
  - Liver disorder [Unknown]
  - Liver abscess [Unknown]
  - Cerebrovascular accident [Unknown]
  - Renal disorder [Unknown]
  - Cachexia [Unknown]
  - Pyrexia [Unknown]
  - Pancytopenia [Unknown]
  - Transfusion reaction [Unknown]
  - Toxic skin eruption [Unknown]
  - Drug resistance [Unknown]
  - Localised infection [Unknown]
  - Diarrhoea [Unknown]
  - Urinary tract infection [Unknown]
  - Death [Fatal]
  - Febrile neutropenia [Unknown]
  - Pneumonia [Unknown]
  - Tumour lysis syndrome [Unknown]
  - Oedema [Unknown]
  - Alanine aminotransferase [Unknown]
  - Anaemia [Unknown]
